FAERS Safety Report 8599485-9 (Version None)
Quarter: 2012Q3

REPORT INFORMATION
  Report Type: 
  Country: None (occurrence: None)
  Receive Date: 20120816
  Receipt Date: 20120801
  Transmission Date: 20120928
  Serious: No
  Sender: FDA-Public Use
  Company Number: US-ALLERGAN-1206873US

PATIENT
  Sex: Female

DRUGS (5)
  1. TOBRAMYCIN [Concomitant]
     Indication: EYE ALLERGY
     Dosage: 2 MG, QHS
     Route: 047
  2. LID SCRUBS [Concomitant]
     Indication: EYE ALLERGY
     Dosage: UNK
  3. LID SCRUBS [Concomitant]
     Indication: MEIBOMIANITIS
  4. LASTACAFT [Suspect]
     Indication: EYE ALLERGY
     Dosage: 2 GTT, QD
     Route: 047
     Dates: start: 20120229, end: 20120402
  5. TOBRAMYCIN [Concomitant]
     Indication: MEIBOMIANITIS

REACTIONS (3)
  - DRUG HYPERSENSITIVITY [None]
  - EYE PRURITUS [None]
  - OCULAR HYPERAEMIA [None]
